FAERS Safety Report 8090741-X (Version None)
Quarter: 2012Q1

REPORT INFORMATION
  Report Type: 
  Country: None (occurrence: None)
  Receive Date: 20120124
  Receipt Date: 20120117
  Transmission Date: 20120608
  Serious: Yes (Disabling)
  Sender: FDA-Public Use
  Company Number: 2012SP003159

PATIENT

DRUGS (1)
  1. REMERON [Suspect]

REACTIONS (3)
  - AMNESIA [None]
  - LIPIDS ABNORMAL [None]
  - HYPERTENSION [None]
